FAERS Safety Report 6880089-0 (Version None)
Quarter: 2010Q3

REPORT INFORMATION
  Report Type: 
  Country: None (occurrence: None)
  Receive Date: 20100728
  Receipt Date: 20090821
  Transmission Date: 20110219
  Serious: Yes (Other)
  Sender: FDA-Public Use
  Company Number: US-BRISTOL-MYERS SQUIBB COMPANY-14750582

PATIENT
  Age: 71 Year
  Sex: Female

DRUGS (12)
  1. SPRYCEL [Suspect]
     Indication: CHRONIC MYELOID LEUKAEMIA
     Dates: start: 20080101
  2. SOTALOL HCL [Concomitant]
  3. CALCIUM [Concomitant]
  4. NEXIUM [Concomitant]
  5. AMARYL [Concomitant]
  6. BUMEX [Concomitant]
  7. ADVAIR DISKUS 100/50 [Concomitant]
  8. FLONASE [Concomitant]
  9. NORVASC [Concomitant]
  10. SYNTHROID [Concomitant]
  11. MICRO-K [Concomitant]
  12. VITAMIN D [Concomitant]

REACTIONS (2)
  - LUNG DISORDER [None]
  - PLEURAL EFFUSION [None]
